FAERS Safety Report 7196846-X (Version None)
Quarter: 2010Q4

REPORT INFORMATION
  Report Type: 
  Country: None (occurrence: None)
  Receive Date: 20101223
  Receipt Date: 20101123
  Transmission Date: 20110411
  Serious: No
  Sender: FDA-Public Use
  Company Number: US-AMGEN-USASP2010000859

PATIENT

DRUGS (1)
  1. ENBREL [Suspect]
     Indication: PSORIASIS
     Dosage: 50 MG, 2 TIMES/WK
     Route: 058
     Dates: start: 20101013, end: 20101101

REACTIONS (11)
  - APHAGIA [None]
  - CONTUSION [None]
  - FATIGUE [None]
  - INFLUENZA LIKE ILLNESS [None]
  - INJECTION SITE ERYTHEMA [None]
  - PAIN [None]
  - PSORIASIS [None]
  - RASH MACULAR [None]
  - RASH PUSTULAR [None]
  - SOMNOLENCE [None]
  - WEIGHT DECREASED [None]
